FAERS Safety Report 26000861 (Version 1)
Quarter: 2025Q4

REPORT INFORMATION
  Report Type: Spontaneous
  Country: US (occurrence: None)
  Receive Date: 20251105
  Receipt Date: 20251105
  Transmission Date: 20260118
  Serious: Yes (Other)
  Sender: FDA-CTU
  Company Number: None

PATIENT
  Age: 75 Year
  Sex: Male
  Weight: 83.25 kg

DRUGS (9)
  1. CLOPIDOGREL [Suspect]
     Active Substance: CLOPIDOGREL BISULFATE
     Indication: Stent placement
     Dates: start: 20201210, end: 20250910
  2. CLOPIDOGREL [Concomitant]
     Active Substance: CLOPIDOGREL BISULFATE
  3. DUTASTERIDE [Concomitant]
     Active Substance: DUTASTERIDE
  4. METFORMIN [Concomitant]
     Active Substance: METFORMIN HYDROCHLORIDE
  5. CABERGOLINE [Concomitant]
     Active Substance: CABERGOLINE
  6. ZINC [Concomitant]
     Active Substance: ZINC
  7. FENUGREEK SEED [Concomitant]
     Active Substance: FENUGREEK SEED
  8. nugenix [Concomitant]
  9. VITAMIN D [Concomitant]
     Active Substance: VITAMIN D NOS

REACTIONS (1)
  - Dental caries [None]

NARRATIVE: CASE EVENT DATE: 20210101
